FAERS Safety Report 4782459-3 (Version None)
Quarter: 2005Q3

REPORT INFORMATION
  Report Type: 
  Country: None (occurrence: None)
  Receive Date: 20050929
  Receipt Date: 20041115
  Transmission Date: 20060218
  Serious: No
  Sender: FDA-Public Use
  Company Number: 389514

PATIENT

DRUGS (2)
  1. COREG [Suspect]
     Indication: CARDIOMYOPATHY
     Dosage: 6.25MG UNKNOWN
     Route: 048
  2. INHALER [Concomitant]

REACTIONS (1)
  - WHEEZING [None]
